FAERS Safety Report 5865789-3 (Version None)
Quarter: 2008Q3

REPORT INFORMATION
  Report Type: 
  Country: None (occurrence: None)
  Receive Date: 20080829
  Receipt Date: 20080828
  Transmission Date: 20090109
  Serious: Yes (Death)
  Sender: FDA-Public Use
  Company Number: PHHY2008IN19479

PATIENT
  Sex: Male

DRUGS (1)
  1. ASUNRA [Suspect]
     Dosage: 100/ 400 MG

REACTIONS (1)
  - DEATH [None]
